FAERS Safety Report 7615815-6 (Version None)
Quarter: 2011Q3

REPORT INFORMATION
  Report Type: 
  Country: None (occurrence: None)
  Receive Date: 20110711
  Receipt Date: 20110627
  Transmission Date: 20111222
  Serious: Yes (Hospitalization)
  Sender: FDA-Public Use
  Company Number: 1000021936

PATIENT
  Age: 83 Year
  Sex: Female

DRUGS (10)
  1. FUROSEMIDE [Suspect]
     Indication: HYPERTENSION
     Dosage: 20 MG (20 MG,1 IN 1 D),ORAL
     Route: 048
     Dates: start: 20110316, end: 20110414
  2. KARDEGIC (ACETYLSALICYLATE LYSINE) (ACETYLSALICYLATE LYSINE) [Concomitant]
  3. TRANSIPEG (MACROGOL) (MACROGOL) [Concomitant]
  4. ROCEPHIN [Suspect]
     Indication: URINARY TRACT INFECTION
     Dosage: 1 GRAM (1 GM,1 IN 1 D),ORAL
     Route: 048
     Dates: start: 20110330, end: 20110414
  5. APROVEL (IRBESARTAN) (IRBESARTAN) [Concomitant]
  6. ESCITALOPRAM [Suspect]
     Indication: DEPRESSION
     Dosage: ORAL
     Route: 048
     Dates: start: 20110315, end: 20110421
  7. NEXIUM [Concomitant]
  8. XANAX [Concomitant]
  9. ZOLEDRONIC ACID (ZOMETA) [Suspect]
     Indication: HYPERCALCAEMIA
     Dosage: 4 MG (4 MG,1 IN 1 D),INTRAVENOUS (NOT OTHERWISE SPECIFIED)
     Route: 042
     Dates: start: 20110322, end: 20110322
  10. RIVOTRIL (CLONAZEPAM) (CLONAZEPAM) [Concomitant]

REACTIONS (2)
  - LEUKOPENIA [None]
  - NEUTROPENIA [None]
